FAERS Safety Report 21938829 (Version 1)
Quarter: 2023Q1

REPORT INFORMATION
  Report Type: Spontaneous
  Country: JP (occurrence: JP)
  Receive Date: 20230201
  Receipt Date: 20230201
  Transmission Date: 20230418
  Serious: Yes (Other)
  Sender: FDA-Public Use
  Company Number: JP-TAKEDA-2022TJP042447

PATIENT
  Age: 68 Year
  Sex: Male
  Weight: 51.4 kg

DRUGS (9)
  1. CABOMETYX [Suspect]
     Active Substance: CABOZANTINIB S-MALATE
     Indication: Renal cell carcinoma
     Dosage: 40 MG, QD
     Route: 048
     Dates: start: 20220218
  2. LANSOPRAZOLE [Concomitant]
     Active Substance: LANSOPRAZOLE
     Dosage: UNK
     Route: 065
  3. AMLODIPINE [Concomitant]
     Active Substance: AMLODIPINE BESYLATE
     Dosage: UNK
     Route: 065
  4. BETAMETHASONE [Concomitant]
     Active Substance: BETAMETHASONE
     Dosage: UNK
     Route: 065
  5. SULFAMETHOXAZOLE\TRIMETHOPRIM [Concomitant]
     Active Substance: SULFAMETHOXAZOLE\TRIMETHOPRIM
     Dosage: UNK
     Route: 065
  6. ELOBIXIBAT [Concomitant]
     Active Substance: ELOBIXIBAT
     Dosage: UNK
     Route: 065
  7. LEVETIRACETAM [Concomitant]
     Active Substance: LEVETIRACETAM
     Dosage: UNK
     Route: 065
  8. ISOSORBIDE [Concomitant]
     Active Substance: ISOSORBIDE
     Dosage: UNK
     Route: 048
  9. ESZOPICLONE [Concomitant]
     Active Substance: ESZOPICLONE
     Dosage: UNK
     Route: 065

REACTIONS (3)
  - Hypothyroidism [Recovering/Resolving]
  - Palmar-plantar erythrodysaesthesia syndrome [Recovering/Resolving]
  - Hypertension [Not Recovered/Not Resolved]

NARRATIVE: CASE EVENT DATE: 20220314
